FAERS Safety Report 12378773 (Version 1)
Quarter: 2016Q2

REPORT INFORMATION
  Report Type: Spontaneous
  Country: US (occurrence: US)
  Receive Date: 20160517
  Receipt Date: 20160517
  Transmission Date: 20160815
  Serious: No
  Sender: FDA-Public Use
  Company Number: PHHY2016US067945

PATIENT
  Age: 61 Year
  Sex: Female

DRUGS (1)
  1. VOLTAREN [Suspect]
     Active Substance: DICLOFENAC SODIUM
     Indication: OCCIPITAL NEURALGIA
     Dosage: UNK
     Route: 061
     Dates: start: 201511, end: 201604

REACTIONS (7)
  - Alopecia [Not Recovered/Not Resolved]
  - Off label use [Unknown]
  - Drug administration error [Unknown]
  - Drug prescribing error [Unknown]
  - Menopause [Not Recovered/Not Resolved]
  - Drug administered at inappropriate site [Unknown]
  - Condition aggravated [Not Recovered/Not Resolved]

NARRATIVE: CASE EVENT DATE: 201602
